FAERS Safety Report 19275815 (Version 1)
Quarter: 2021Q2

REPORT INFORMATION
  Report Type: Spontaneous
  Country: US (occurrence: US)
  Receive Date: 20210519
  Receipt Date: 20210519
  Transmission Date: 20210717
  Serious: Yes (Other)
  Sender: FDA-Public Use
  Company Number: US-SA-2021SA159546

PATIENT
  Sex: Female

DRUGS (1)
  1. PLAVIX [Suspect]
     Active Substance: CLOPIDOGREL BISULFATE

REACTIONS (14)
  - Transient ischaemic attack [Unknown]
  - Insomnia [Unknown]
  - Hallucination [Unknown]
  - Fear of falling [Unknown]
  - Pollakiuria [Unknown]
  - Rheumatoid arthritis [Unknown]
  - Constipation [Unknown]
  - Feeling abnormal [Unknown]
  - Diarrhoea [Unknown]
  - Confusional state [Unknown]
  - Pain [Unknown]
  - Mobility decreased [Unknown]
  - Blood urine present [Unknown]
  - Dysuria [Unknown]
